FAERS Safety Report 19936506 (Version 1)
Quarter: 2021Q4

REPORT INFORMATION
  Report Type: Spontaneous
  Country: PK (occurrence: PK)
  Receive Date: 20211009
  Receipt Date: 20211009
  Transmission Date: 20220304
  Serious: No
  Sender: FDA-Public Use
  Company Number: PK-LUPIN PHARMACEUTICALS INC.-2021-18917

PATIENT
  Age: 45 Year
  Sex: Male

DRUGS (3)
  1. AZITHROMYCIN ANHYDROUS [Suspect]
     Active Substance: AZITHROMYCIN ANHYDROUS
     Indication: COVID-19
     Dosage: 10 MILLIGRAM/KILOGRAM, QD (INJECTION)
     Route: 065
  2. CEFTRIAXONE [Suspect]
     Active Substance: CEFTRIAXONE
     Indication: COVID-19
     Dosage: 50 MILLIGRAM/KILOGRAM, QD (INKECTION)
     Route: 065
  3. ENOXAPARIN [Suspect]
     Active Substance: ENOXAPARIN
     Indication: COVID-19
     Dosage: 40 MILLIGRAM, QD
     Route: 058

REACTIONS (1)
  - Off label use [Unknown]
